FAERS Safety Report 19595052 (Version 1)
Quarter: 2021Q3

REPORT INFORMATION
  Report Type: Other
  Country: CN (occurrence: CN)
  Receive Date: 20210722
  Receipt Date: 20210722
  Transmission Date: 20211014
  Serious: Yes (Other)
  Sender: FDA-Public Use
  Company Number: CN-APOTEX-2021AP020497

PATIENT
  Sex: Female

DRUGS (2)
  1. PAROXETINE HYDROCHLORIDE TABLET [Suspect]
     Active Substance: PAROXETINE HYDROCHLORIDE
     Dosage: 20 MILLIGRAM, QD
     Route: 048
     Dates: start: 20210705, end: 20210707
  2. PAROXETINE HYDROCHLORIDE TABLET [Suspect]
     Active Substance: PAROXETINE HYDROCHLORIDE
     Indication: ANXIETY DISORDER
     Dosage: 10 MILLIGRAM, QD
     Route: 048
     Dates: start: 20210702, end: 20210704

REACTIONS (3)
  - Prescribed overdose [Unknown]
  - Abdominal pain [Recovering/Resolving]
  - Diarrhoea [Recovering/Resolving]

NARRATIVE: CASE EVENT DATE: 202107
